FAERS Safety Report 7348534-4 (Version None)
Quarter: 2011Q1

REPORT INFORMATION
  Report Type: 
  Country: None (occurrence: None)
  Receive Date: 20110314
  Receipt Date: 20110304
  Transmission Date: 20110831
  Serious: Yes (Hospitalization)
  Sender: FDA-Public Use
  Company Number: US-BIOGENIDEC-2011BI002725

PATIENT
  Age: 45 Year
  Sex: Female
  Weight: 53 kg

DRUGS (7)
  1. ANTIBIOTICS [Concomitant]
     Indication: SEPSIS
  2. FLOMAX [Concomitant]
     Indication: PRODUCT USED FOR UNKNOWN INDICATION
  3. XANAX [Concomitant]
     Indication: PRODUCT USED FOR UNKNOWN INDICATION
  4. EFFEXOR [Concomitant]
  5. ZYPREXA [Concomitant]
  6. ANTIBIOTICS [Concomitant]
     Indication: KIDNEY INFECTION
  7. TYSABRI [Suspect]
     Indication: MULTIPLE SCLEROSIS
     Route: 042
     Dates: start: 20101221

REACTIONS (5)
  - KIDNEY INFECTION [None]
  - ABASIA [None]
  - TREMOR [None]
  - SEPSIS [None]
  - PYREXIA [None]
